FAERS Safety Report 10418412 (Version 3)
Quarter: 2016Q4

REPORT INFORMATION
  Report Type: Spontaneous
  Country: FR (occurrence: FR)
  Receive Date: 20140829
  Receipt Date: 20161216
  Transmission Date: 20170206
  Serious: Yes (Other)
  Sender: FDA-Public Use
  Company Number: FR-009507513-1408FRA011281

PATIENT
  Age: 71 Year
  Sex: Male

DRUGS (3)
  1. CALCIPARINE [Suspect]
     Active Substance: HEPARIN CALCIUM
     Indication: ANTICOAGULANT THERAPY
     Dosage: 5000 IU, EACH 9 HOURS
     Route: 042
     Dates: start: 20140714, end: 20140716
  2. ORGARAN [Suspect]
     Active Substance: DANAPAROID SODIUM
     Indication: ANTICOAGULANT THERAPY
     Dosage: 2250 IU, QD, STRENGTH 750 IU/0.6 ML
     Route: 040
     Dates: start: 20140717, end: 20140717
  3. ARGANOVA [Suspect]
     Active Substance: ARGATROBAN
     Indication: ANTICOAGULANT THERAPY
     Dosage: STRENGTH: 100 MG/ML;17.2 MG ONCE A DAY
     Route: 042
     Dates: start: 20140718, end: 20140721

REACTIONS (1)
  - Thrombocytopenia [Recovered/Resolved]

NARRATIVE: CASE EVENT DATE: 20140716
